FAERS Safety Report 11628869 (Version 1)
Quarter: 2015Q4

REPORT INFORMATION
  Report Type: Spontaneous
  Country: BR (occurrence: BR)
  Receive Date: 20151014
  Receipt Date: 20151014
  Transmission Date: 20160304
  Serious: Yes (Other)
  Sender: FDA-Public Use
  Company Number: BR-GLAXOSMITHKLINE-BR2015GSK120783

PATIENT
  Sex: Female

DRUGS (1)
  1. RELVAR ELLIPTA [Suspect]
     Active Substance: FLUTICASONE FUROATE\VILANTEROL TRIFENATATE
     Indication: ASTHMA
     Dosage: 1 UNK, QD
     Route: 048

REACTIONS (5)
  - Drug ineffective [Unknown]
  - Wheezing [Unknown]
  - Overdose [Unknown]
  - Asthmatic crisis [Unknown]
  - Product quality issue [Unknown]
